FAERS Safety Report 12419956 (Version 2)
Quarter: 2016Q3

REPORT INFORMATION
  Report Type: Spontaneous
  Country: FR (occurrence: FR)
  Receive Date: 20160531
  Receipt Date: 20160725
  Transmission Date: 20161109
  Serious: Yes (Other)
  Sender: FDA-Public Use
  Company Number: FR-PFIZER INC-2016195553

PATIENT
  Age: 74 Year
  Sex: Male

DRUGS (9)
  1. NOVATREX NOS [Suspect]
     Active Substance: AZITHROMYCIN OR METHOTREXATE SODIUM
     Dosage: 15 MG, WEEKLY
  2. COVERSYL /00790703/ [Concomitant]
     Active Substance: PERINDOPRIL
     Dosage: UNK
     Dates: start: 201510
  3. NOVATREX NOS [Suspect]
     Active Substance: AZITHROMYCIN OR METHOTREXATE SODIUM
     Dosage: 2.5 MG, WEEKLY
     Dates: start: 201510
  4. FLECAINE [Concomitant]
     Active Substance: FLECAINIDE
  5. NOVATREX NOS [Suspect]
     Active Substance: AZITHROMYCIN OR METHOTREXATE SODIUM
     Indication: RHEUMATOID ARTHRITIS
     Dosage: 15 MG, WEEKLY
     Dates: start: 2001
  6. METOJECT [Suspect]
     Active Substance: METHOTREXATE SODIUM
     Indication: RHEUMATOID ARTHRITIS
  7. SPECIAFOLDINE [Concomitant]
     Active Substance: FOLIC ACID
     Dosage: UNK
     Dates: start: 201510
  8. ELIQUIS [Concomitant]
     Active Substance: APIXABAN
     Dosage: UNK
     Dates: start: 201507
  9. CORTANCYL [Concomitant]
     Active Substance: PREDNISONE
     Dosage: UNK
     Dates: start: 201510

REACTIONS (7)
  - Dry eye [Not Recovered/Not Resolved]
  - Cough [Not Recovered/Not Resolved]
  - Glaucoma [Not Recovered/Not Resolved]
  - Disease recurrence [Unknown]
  - Conjunctivitis [Not Recovered/Not Resolved]
  - Visual impairment [Unknown]
  - Bronchitis [Unknown]

NARRATIVE: CASE EVENT DATE: 201601
